FAERS Safety Report 25068831 (Version 1)
Quarter: 2025Q1

REPORT INFORMATION
  Report Type: Spontaneous
  Country: CN (occurrence: CN)
  Receive Date: 20250312
  Receipt Date: 20250312
  Transmission Date: 20250409
  Serious: No
  Sender: SANOFI AVENTIS
  Company Number: CN-SA-2025SA068874

PATIENT

DRUGS (1)
  1. TOUJEO [Suspect]
     Active Substance: INSULIN GLARGINE

REACTIONS (2)
  - Device malfunction [Unknown]
  - No adverse event [Unknown]
